FAERS Safety Report 11798561 (Version 2)
Quarter: 2015Q4

REPORT INFORMATION
  Report Type: Spontaneous
  Country: US (occurrence: US)
  Receive Date: 20151203
  Receipt Date: 20151208
  Transmission Date: 20160305
  Serious: Yes (Other)
  Sender: FDA-Public Use
  Company Number: US-IPSEN BIOPHARMACEUTICALS, INC.-2015-09036

PATIENT
  Sex: Female

DRUGS (1)
  1. DYSPORT [Suspect]
     Active Substance: ABOBOTULINUMTOXINA
     Indication: PRODUCT USED FOR UNKNOWN INDICATION
     Dosage: NOT REPORTED
     Route: 065
     Dates: start: 201510, end: 201510

REACTIONS (5)
  - Eyelid ptosis [Unknown]
  - Urinary tract infection [Unknown]
  - Sinusitis [Unknown]
  - Viral pericarditis [Unknown]
  - Fear [Unknown]

NARRATIVE: CASE EVENT DATE: 2015
